FAERS Safety Report 8564612-6 (Version None)
Quarter: 2012Q3

REPORT INFORMATION
  Report Type: 
  Country: None (occurrence: None)
  Receive Date: 20120803
  Receipt Date: 20120727
  Transmission Date: 20120928
  Serious: Yes (Hospitalization, Other)
  Sender: FDA-Public Use
  Company Number: GB-PFIZER INC-2012182422

PATIENT
  Age: 53 Year
  Sex: Female

DRUGS (2)
  1. TEGRETOL [Suspect]
     Indication: EPILEPSY
     Dosage: 200 MG IN THE MORNING AND 400 MG IN THE BEDTIME
     Dates: start: 20100101
  2. NEURONTIN [Suspect]
     Dosage: 500 MG, 3X/DAY

REACTIONS (2)
  - BLOOD SODIUM DECREASED [None]
  - CIRCULATORY COLLAPSE [None]
